FAERS Safety Report 8671985 (Version 3)
Quarter: 2012Q4

REPORT INFORMATION
  Report Type: 
  Country: US (occurrence: US)
  Receive Date: 20120718
  Receipt Date: 20120919
  Transmission Date: 20130627
  Serious: No
  Sender: FDA-Public Use
  Company Number: US-009507513-1207USA002236

PATIENT

DRUGS (3)
  1. VICTRELIS [Suspect]
     Indication: HEPATITIS C
     Dosage: 800 mg, tid
     Route: 048
     Dates: start: 20120515
  2. RIBAPAK [Suspect]
     Indication: HEPATITIS C
     Dosage: daily dosage specified as ^1200^ (no units provided)
     Route: 048
     Dates: start: 20120415
  3. PEGASYS [Suspect]
     Indication: HEPATITIS C
     Dosage: UNK
     Route: 048
     Dates: start: 20120415

REACTIONS (2)
  - Dyspnoea [Recovering/Resolving]
  - Fatigue [Recovered/Resolved]
